FAERS Safety Report 23164538 (Version 3)
Quarter: 2023Q4

REPORT INFORMATION
  Report Type: Other
  Country: HU (occurrence: HU)
  Receive Date: 20231109
  Receipt Date: 20231204
  Transmission Date: 20240110
  Serious: No
  Sender: FDA-Public Use
  Company Number: HU-CELLTRION HEALTHCARE HUNGARY KFT-2023HU019662

PATIENT
  Age: 30 Month
  Sex: Male

DRUGS (3)
  1. RITUXIMAB [Suspect]
     Active Substance: RITUXIMAB
     Indication: Hepatitis neonatal
     Dosage: (SINGLE WEEKLY DOSE AND REPEATED SIX TIMES IN TOTAL.)
     Route: 042
     Dates: start: 20220119
  2. AZATHIOPRINE [Concomitant]
     Active Substance: AZATHIOPRINE
  3. PREDNISOLONE [Concomitant]
     Active Substance: PREDNISOLONE

REACTIONS (6)
  - Respiratory tract infection [Unknown]
  - Influenza [Unknown]
  - Device related infection [Unknown]
  - Oral candidiasis [Unknown]
  - Hypogammaglobulinaemia [Unknown]
  - Off label use [Unknown]
